FAERS Safety Report 22594028 (Version 3)
Quarter: 2024Q1

REPORT INFORMATION
  Report Type: Spontaneous
  Country: US (occurrence: US)
  Receive Date: 20230613
  Receipt Date: 20240311
  Transmission Date: 20240410
  Serious: Yes (Other)
  Sender: FDA-Public Use
  Company Number: US-BRISTOL-MYERS SQUIBB COMPANY-2023-082822

PATIENT
  Age: 89 Year
  Sex: Female
  Weight: 50.35 kg

DRUGS (11)
  1. REVLIMID [Interacting]
     Active Substance: LENALIDOMIDE
     Indication: Myelodysplastic syndrome
     Dosage: QD 21DON7DOFF
     Route: 048
     Dates: start: 20221208
  2. REVLIMID [Interacting]
     Active Substance: LENALIDOMIDE
     Indication: Plasma cell myeloma
  3. DEFERASIROX [Interacting]
     Active Substance: DEFERASIROX
     Indication: Product used for unknown indication
     Dosage: IRON CHELATING AGENT
     Dates: start: 20230424
  4. GABAPENTIN [Concomitant]
     Active Substance: GABAPENTIN
     Indication: Product used for unknown indication
  5. MINERALS\VITAMINS [Concomitant]
     Active Substance: MINERALS\VITAMINS
     Indication: Eye disorder
     Dosage: 2 SUPPLEMENTS
  6. MECLIZINE [Concomitant]
     Active Substance: MECLIZINE HYDROCHLORIDE
     Indication: Product used for unknown indication
  7. METOPROLOL [Concomitant]
     Active Substance: METOPROLOL
     Indication: Product used for unknown indication
  8. OXYCODONE [Concomitant]
     Active Substance: OXYCODONE\OXYCODONE HYDROCHLORIDE
     Indication: Product used for unknown indication
  9. TYLENOL [Concomitant]
     Active Substance: ACETAMINOPHEN
     Indication: Product used for unknown indication
  10. VITAMIN B12 [Concomitant]
     Active Substance: CYANOCOBALAMIN
     Indication: Product used for unknown indication
  11. VITAMIN D3 [Concomitant]
     Active Substance: CHOLECALCIFEROL
     Indication: Product used for unknown indication

REACTIONS (5)
  - Product dose omission issue [Unknown]
  - Treatment noncompliance [Unknown]
  - Drug interaction [Unknown]
  - Diarrhoea [Unknown]
  - Malignant neoplasm progression [Unknown]

NARRATIVE: CASE EVENT DATE: 20240304
